FAERS Safety Report 20265045 (Version 1)
Quarter: 2021Q4

REPORT INFORMATION
  Report Type: Report from Study
  Country: CN (occurrence: CN)
  Receive Date: 20211231
  Receipt Date: 20211231
  Transmission Date: 20220303
  Serious: Yes (Death, Hospitalization)
  Sender: FDA-Public Use
  Company Number: CN-NOVARTISPH-NVSC2021CN299524

PATIENT
  Age: 65 Year
  Sex: Female

DRUGS (1)
  1. ZYKADIA [Suspect]
     Active Substance: CERITINIB
     Indication: Non-small cell lung cancer
     Dosage: 450 MG, QD
     Route: 048
     Dates: start: 20201127, end: 20211227

REACTIONS (11)
  - Metastases to bone [Fatal]
  - Lung neoplasm malignant [Fatal]
  - Lymphoma [Fatal]
  - Metastases to pleura [Fatal]
  - Pleural effusion [Fatal]
  - Pulmonary embolism [Fatal]
  - Platelet count decreased [Fatal]
  - Pneumonia [Fatal]
  - Hypokalaemia [Fatal]
  - Lung adenocarcinoma stage IV [Fatal]
  - Pain [Unknown]
